FAERS Safety Report 7249733-2 (Version None)
Quarter: 2011Q1

REPORT INFORMATION
  Report Type: 
  Country: None (occurrence: None)
  Receive Date: 20110128
  Receipt Date: 20110125
  Transmission Date: 20110831
  Serious: Yes (Death, Other)
  Sender: FDA-Public Use
  Company Number: US-AMGEN-QUU425143

PATIENT
  Age: 86 Year
  Sex: Female
  Weight: 94.9 kg

DRUGS (14)
  1. ELTROMBOPAG [Concomitant]
  2. NPLATE [Suspect]
     Dosage: 950 A?G, QWK
     Route: 058
     Dates: start: 20100310, end: 20100616
  3. FUROSEMIDE [Concomitant]
     Dosage: 40 MG, UNK
  4. NPLATE [Suspect]
     Indication: IDIOPATHIC THROMBOCYTOPENIC PURPURA
     Dosage: 950 A?G, QWK
     Route: 058
     Dates: start: 20100310, end: 20100616
  5. HYDROCODONE [Concomitant]
     Dosage: 5 MG, UNK
  6. SIMVASTATIN [Concomitant]
     Dosage: 20 MG, UNK
  7. DESIPRAMINE [Concomitant]
     Dosage: 75 MG, UNK
  8. HYDROXYZINE [Concomitant]
     Dosage: 10 MG, UNK
  9. NPLATE [Suspect]
     Dates: start: 20100310, end: 20100616
  10. CITALOPRAM [Concomitant]
     Dosage: 20 MG, UNK
  11. STOOL SOFTENER [Concomitant]
  12. FISH OIL [Concomitant]
  13. NPLATE [Suspect]
     Dosage: 950 A?G, QWK
     Route: 058
     Dates: start: 20100310, end: 20100616
  14. ALPRAZOLAM [Concomitant]
     Dosage: .5 MG, PRN

REACTIONS (2)
  - IDIOPATHIC THROMBOCYTOPENIC PURPURA [None]
  - DRUG INEFFECTIVE [None]
